FAERS Safety Report 15756406 (Version 1)
Quarter: 2018Q4

REPORT INFORMATION
  Report Type: Spontaneous
  Country: AL (occurrence: AL)
  Receive Date: 20181222
  Receipt Date: 20181222
  Transmission Date: 20190206
  Serious: Yes (Other)
  Sender: FDA-Public Use
  Company Number: None

PATIENT
  Age: 68 Year
  Sex: Female
  Weight: 76.5 kg

DRUGS (5)
  1. BUPROPION TAB 100 MG [Suspect]
     Active Substance: BUPROPION
     Indication: DEPRESSION
     Dosage: ?          QUANTITY:1 TABLET(S);?
     Route: 048
     Dates: start: 20181119, end: 20181203
  2. BUPROPION TAB 100 MG [Suspect]
     Active Substance: BUPROPION
     Indication: ANXIETY
     Dosage: ?          QUANTITY:1 TABLET(S);?
     Route: 048
     Dates: start: 20181119, end: 20181203
  3. KIRKLAND SIGNATURE ALLERCLEAR [Concomitant]
     Active Substance: LORATADINE
  4. VITAMIN D [Concomitant]
     Active Substance: CHOLECALCIFEROL
  5. ASPIRIN. [Concomitant]
     Active Substance: ASPIRIN

REACTIONS (7)
  - Product substitution issue [None]
  - Depressed mood [None]
  - Lack of satiety [None]
  - Food craving [None]
  - Drug ineffective [None]
  - Self esteem decreased [None]
  - Product complaint [None]

NARRATIVE: CASE EVENT DATE: 20181119
